FAERS Safety Report 9668804 (Version 2)
Quarter: 2013Q4

REPORT INFORMATION
  Report Type: Spontaneous
  Country: DE (occurrence: DE)
  Receive Date: 20131105
  Receipt Date: 20131105
  Transmission Date: 20140711
  Serious: Yes (Life-Threatening, Hospitalization, Disabling)
  Sender: FDA-Public Use
  Company Number: DE-JNJFOC-20130914373

PATIENT
  Age: 66 Year
  Sex: Female

DRUGS (4)
  1. XARELTO [Suspect]
     Indication: CEREBROVASCULAR ACCIDENT PROPHYLAXIS
     Route: 048
     Dates: start: 20130503, end: 20130715
  2. XARELTO [Suspect]
     Indication: ATRIAL FIBRILLATION
     Route: 048
     Dates: start: 20130503, end: 20130715
  3. VERAPAMIL [Concomitant]
     Route: 065
     Dates: start: 201305
  4. RAMIPRIL [Concomitant]
     Route: 065
     Dates: start: 2009

REACTIONS (4)
  - Basal ganglia haemorrhage [Not Recovered/Not Resolved]
  - CNS ventriculitis [Unknown]
  - Epilepsy [Unknown]
  - Pyrexia [Unknown]
